FAERS Safety Report 9889204 (Version 1)
Quarter: 2014Q1

REPORT INFORMATION
  Report Type: Spontaneous
  Country: GB (occurrence: GB)
  Receive Date: 20140211
  Receipt Date: 20140211
  Transmission Date: 20141002
  Serious: Yes (Death, Life-Threatening, Hospitalization, Other)
  Sender: FDA-Public Use
  Company Number: GB-ABBVIE-14P-167-1199675-00

PATIENT
  Age: 68 Year
  Sex: Female

DRUGS (6)
  1. HUMIRA [Suspect]
     Indication: RHEUMATOID ARTHRITIS
     Route: 058
     Dates: start: 20101116, end: 20131202
  2. PREDNISOLONE [Concomitant]
     Indication: RHEUMATOID ARTHRITIS
     Dosage: RA MAINTENANCE DOSE - DOSE VARIES WITH DISEASE STATE
     Route: 047
     Dates: end: 20131211
  3. BISOPROLOL [Concomitant]
     Indication: HYPERTENSION
     Route: 048
     Dates: end: 20131211
  4. OMEPRAZOLE [Concomitant]
     Indication: PRODUCT USED FOR UNKNOWN INDICATION
     Route: 048
     Dates: end: 20131211
  5. CALCEOS [Concomitant]
     Indication: PRODUCT USED FOR UNKNOWN INDICATION
     Dosage: PHARM. FORM - EPIDURAL. CHOLECALCIFEROL CONCENTRATE (POWDER FORM)
     Route: 048
  6. SIMVASTATIN [Concomitant]
     Indication: HYPERCHOLESTEROLAEMIA
     Dosage: AT NIGHT
     Route: 048
     Dates: start: 20131211

REACTIONS (24)
  - Hepatitis [Fatal]
  - Intestinal ischaemia [Fatal]
  - Abdominal pain lower [Fatal]
  - Syncope [Fatal]
  - Diarrhoea [Fatal]
  - Vomiting [Fatal]
  - Colitis ischaemic [Fatal]
  - Systemic inflammatory response syndrome [Fatal]
  - Sepsis [Fatal]
  - Anuria [Fatal]
  - Pyrexia [Fatal]
  - Blood lactic acid increased [Unknown]
  - Peritonitis [Unknown]
  - General physical health deterioration [Fatal]
  - Gastrointestinal disorder [Unknown]
  - Intestinal ischaemia [Unknown]
  - Intestinal dilatation [Unknown]
  - Localised intraabdominal fluid collection [Unknown]
  - Stoma site reaction [Unknown]
  - Hepatic failure [Fatal]
  - Multi-organ failure [Fatal]
  - Stress ulcer [Unknown]
  - Blood pressure decreased [Unknown]
  - Heart rate increased [Unknown]
